FAERS Safety Report 13077854 (Version 2)
Quarter: 2018Q1

REPORT INFORMATION
  Report Type: Spontaneous
  Country: US (occurrence: US)
  Receive Date: 20170102
  Receipt Date: 20180220
  Transmission Date: 20180508
  Serious: Yes (Other)
  Sender: FDA-Public Use
  Company Number: US-ROCHE-1872095

PATIENT
  Sex: Female

DRUGS (34)
  1. BIOTIN [Concomitant]
     Active Substance: BIOTIN
     Route: 065
  2. ALPHAGAN P [Concomitant]
     Active Substance: BRIMONIDINE TARTRATE
  3. OSCAL [Concomitant]
     Active Substance: CALCIUM CARBONATE
     Route: 065
  4. CRANBERRY FRUIT CONCENTRATE WITH VITAMINS C+E [Concomitant]
     Route: 065
  5. DELTASONE [Concomitant]
     Active Substance: PREDNISONE
     Route: 065
  6. CELLCEPT [Suspect]
     Active Substance: MYCOPHENOLATE MOFETIL\MYCOPHENOLATE MOFETIL HYDROCHLORIDE
     Indication: RENAL TRANSPLANT
     Route: 048
  7. CELLCEPT [Suspect]
     Active Substance: MYCOPHENOLATE MOFETIL\MYCOPHENOLATE MOFETIL HYDROCHLORIDE
     Indication: PANCREAS TRANSPLANT
  8. PROGRAF [Suspect]
     Active Substance: TACROLIMUS\TACROLIMUS ANHYDROUS
     Indication: PANCREAS TRANSPLANT
     Route: 048
     Dates: start: 200904
  9. PROGRAF [Suspect]
     Active Substance: TACROLIMUS\TACROLIMUS ANHYDROUS
     Indication: IMMUNOSUPPRESSION
     Dosage: ONCE DAILY(1 MG IN MORN 2 MG AT NIGHT),ONGOING
     Route: 048
  10. PREDNISONE. [Suspect]
     Active Substance: PREDNISONE
     Indication: PANCREAS TRANSPLANT
  11. TEMOVATE [Concomitant]
     Active Substance: CLOBETASOL PROPIONATE
  12. COLACE [Concomitant]
     Active Substance: DOCUSATE SODIUM
     Route: 065
  13. CELLCEPT [Suspect]
     Active Substance: MYCOPHENOLATE MOFETIL\MYCOPHENOLATE MOFETIL HYDROCHLORIDE
     Indication: IMMUNOSUPPRESSION
  14. PROGRAF [Suspect]
     Active Substance: TACROLIMUS\TACROLIMUS ANHYDROUS
     Indication: RENAL TRANSPLANT
     Route: 048
  15. PREDNISONE. [Suspect]
     Active Substance: PREDNISONE
     Indication: RENAL TRANSPLANT
     Route: 048
  16. CORTISONE [Concomitant]
     Active Substance: CORTISONE\HYDROCORTISONE
  17. TYLENOL [Concomitant]
     Active Substance: ACETAMINOPHEN
     Route: 065
  18. OLUX [Concomitant]
     Active Substance: CLOBETASOL PROPIONATE
  19. DURAGESIC [Concomitant]
     Active Substance: FENTANYL
  20. VAGIFEM [Concomitant]
     Active Substance: ESTRADIOL
  21. GLUCOSAMINE SULFATE [Concomitant]
     Active Substance: GLUCOSAMINE SULFATE
  22. LASIX [Concomitant]
     Active Substance: FUROSEMIDE
     Route: 065
  23. ORPHENADRINE CITRATE. [Concomitant]
     Active Substance: ORPHENADRINE CITRATE
  24. CHONDROITIN SULFATE [Concomitant]
     Active Substance: CHONDROITIN SULFATE (BOVINE)
  25. PREDNISONE. [Suspect]
     Active Substance: PREDNISONE
     Indication: IMMUNOSUPPRESSION
  26. DEXAMETHASONE. [Concomitant]
     Active Substance: DEXAMETHASONE
  27. RESTORIL [Concomitant]
     Active Substance: TEMAZEPAM
     Route: 065
  28. ERGOCALCIFEROL. [Concomitant]
     Active Substance: ERGOCALCIFEROL
  29. VOLTAREN [Concomitant]
     Active Substance: DICLOFENAC SODIUM
  30. NEXIUM [Concomitant]
     Active Substance: ESOMEPRAZOLE MAGNESIUM
     Route: 065
  31. SYNTHROID [Concomitant]
     Active Substance: LEVOTHYROXINE SODIUM
  32. LIDOCAINE. [Concomitant]
     Active Substance: LIDOCAINE
  33. VACCINIUM MACROCARPON [Concomitant]
     Active Substance: CRANBERRY
  34. CHLORMEZANONE [Concomitant]
     Active Substance: CHLORMEZANONE

REACTIONS (3)
  - Dysphagia [Not Recovered/Not Resolved]
  - Neurodegenerative disorder [Unknown]
  - Speech disorder [Not Recovered/Not Resolved]
